FAERS Safety Report 9263102 (Version 11)
Quarter: 2015Q1

REPORT INFORMATION
  Report Type: Report from Study
  Country: JP (occurrence: JP)
  Receive Date: 20130430
  Receipt Date: 20150310
  Transmission Date: 20150721
  Serious: Yes (Life-Threatening, Hospitalization)
  Sender: FDA-Public Use
  Company Number: JP-ROCHE-1216840

PATIENT
  Age: 69 Year
  Sex: Male
  Weight: 64 kg

DRUGS (37)
  1. BEVACIZUMAB [Suspect]
     Active Substance: BEVACIZUMAB
     Dosage: DATE OF LAST DOSE PRIRO TO SAE 28/MAR/2013
     Route: 042
     Dates: start: 20130207, end: 20130418
  2. ERLOTINIB [Suspect]
     Active Substance: ERLOTINIB
     Indication: LUNG ADENOCARCINOMA
     Dosage: DATE OF LAST DOSE PRIOR TO SAE 18/APR/2013
     Route: 048
     Dates: start: 20130308, end: 20130418
  3. PREDNISOLONE. [Concomitant]
     Active Substance: PREDNISOLONE
     Route: 065
     Dates: start: 20130423
  4. LOXOPROFEN SODIUM [Concomitant]
     Active Substance: LOXOPROFEN SODIUM
     Route: 065
     Dates: start: 20120612, end: 20130217
  5. PREDNISOLONE. [Concomitant]
     Active Substance: PREDNISOLONE
     Indication: RASH MACULO-PAPULAR
     Route: 065
     Dates: start: 20130223, end: 20130418
  6. LOXOPROFEN SODIUM [Concomitant]
     Active Substance: LOXOPROFEN SODIUM
     Dosage: DAILY
     Route: 065
     Dates: start: 20130421, end: 20130421
  7. CEFCAPENE PIVOXIL HYDROCHLORIDE [Concomitant]
     Active Substance: CEFCAPENE PIVOXIL HYDROCHLORIDE
     Dosage: DAILY
     Route: 065
     Dates: start: 20130321, end: 20130418
  8. OXYCONTIN [Concomitant]
     Active Substance: OXYCODONE HYDROCHLORIDE
     Route: 048
     Dates: start: 20130507, end: 20130507
  9. SULFAMETHOXAZOLE/TRIMETHOPRIM [Concomitant]
     Active Substance: SULFAMETHOXAZOLE\TRIMETHOPRIM
     Indication: PROPHYLAXIS
     Dosage: DAILY
     Route: 048
     Dates: start: 20130315, end: 20130418
  10. BECLOMETASONE DIPROPIONATE [Concomitant]
     Active Substance: BECLOMETHASONE DIPROPIONATE
     Dosage: DAILY
     Route: 065
     Dates: start: 20130315, end: 20130418
  11. CARBOPLATIN. [Concomitant]
     Active Substance: CARBOPLATIN
     Indication: LUNG ADENOCARCINOMA
     Route: 041
     Dates: start: 20120626, end: 2012
  12. BEVACIZUMAB [Suspect]
     Active Substance: BEVACIZUMAB
     Indication: LUNG ADENOCARCINOMA
     Dosage: DATE OF LAST DOSE PRIRO TO SAE 28/MAR/2013
     Route: 042
     Dates: start: 20120426, end: 2013
  13. AMLODIPINE BESILATE [Concomitant]
     Active Substance: AMLODIPINE BESYLATE
     Dosage: DAILY
     Route: 065
     Dates: start: 20130424, end: 20130507
  14. AMLODIPINE BESILATE [Concomitant]
     Active Substance: AMLODIPINE BESYLATE
     Route: 048
     Dates: start: 20120926, end: 20130218
  15. LOXOPROFEN SODIUM [Concomitant]
     Active Substance: LOXOPROFEN SODIUM
     Dosage: DAILY
     Route: 065
     Dates: start: 20130424
  16. VALSARTAN. [Concomitant]
     Active Substance: VALSARTAN
     Dosage: DAILY
     Route: 065
     Dates: start: 20130104, end: 20130218
  17. REBAMIPIDE [Concomitant]
     Active Substance: REBAMIPIDE
     Indication: PROPHYLAXIS AGAINST GASTROINTESTINAL ULCER
     Route: 048
     Dates: start: 20130306, end: 20130418
  18. LOXOPROFEN SODIUM [Concomitant]
     Active Substance: LOXOPROFEN SODIUM
     Route: 065
     Dates: start: 20130422, end: 20130507
  19. LAFUTIDINE [Concomitant]
     Active Substance: LAFUTIDINE
     Route: 048
     Dates: start: 20120920, end: 20130217
  20. BIOFERMIN R [Concomitant]
     Active Substance: BACILLUS SUBTILIS\LACTOBACILLUS ACIDOPHILUS\STREPTOCOCCUS FAECAIS
     Indication: PROPHYLAXIS
     Route: 048
     Dates: start: 20130321, end: 20130418
  21. LANSOPRAZOLE. [Concomitant]
     Active Substance: LANSOPRAZOLE
     Indication: PROPHYLAXIS AGAINST GASTROINTESTINAL ULCER
     Route: 065
     Dates: start: 20120622, end: 20130418
  22. LANSOPRAZOLE. [Concomitant]
     Active Substance: LANSOPRAZOLE
     Route: 065
     Dates: start: 20130424
  23. PREDNISOLONE. [Concomitant]
     Active Substance: PREDNISOLONE
     Route: 065
     Dates: start: 20130509
  24. AMLODIPINE BESILATE [Concomitant]
     Active Substance: AMLODIPINE BESYLATE
     Indication: HYPERTENSION
     Dosage: DAILY
     Route: 065
     Dates: start: 20130222, end: 20130418
  25. LOXOPROFEN SODIUM [Concomitant]
     Active Substance: LOXOPROFEN SODIUM
     Indication: MUSCULOSKELETAL PAIN
     Dosage: DAILY
     Route: 065
     Dates: start: 20130306, end: 20130418
  26. RINDERON VG [Concomitant]
     Active Substance: BETAMETHASONE VALERATE\GENTAMICIN SULFATE
     Dosage: DAILY
     Route: 003
     Dates: start: 20130328, end: 20130418
  27. OXYCONTIN [Concomitant]
     Active Substance: OXYCODONE HYDROCHLORIDE
     Indication: BONE PAIN
     Route: 048
     Dates: start: 20120622, end: 20130418
  28. PANVITAN [Concomitant]
     Route: 048
     Dates: start: 20130124
  29. PREDNISOLONE. [Concomitant]
     Active Substance: PREDNISOLONE
     Route: 065
     Dates: start: 20120720
  30. AMLODIPINE BESILATE [Concomitant]
     Active Substance: AMLODIPINE BESYLATE
     Route: 065
     Dates: start: 20130516
  31. VALSARTAN. [Concomitant]
     Active Substance: VALSARTAN
     Dosage: DAILY
     Route: 048
     Dates: start: 20130306, end: 20130418
  32. REBAMIPIDE [Concomitant]
     Active Substance: REBAMIPIDE
     Route: 048
     Dates: start: 20130306, end: 20130418
  33. HYDROCORTISONE BUTYRATE. [Concomitant]
     Active Substance: HYDROCORTISONE BUTYRATE
     Dosage: DAILY
     Route: 065
     Dates: start: 20130315, end: 20130418
  34. PACLITAXEL. [Concomitant]
     Active Substance: PACLITAXEL
     Indication: LUNG ADENOCARCINOMA
     Route: 041
  35. INDAPAMIDE. [Concomitant]
     Active Substance: INDAPAMIDE
     Route: 065
     Dates: start: 20121011, end: 20130218
  36. PEMETREXED DISODIUM [Suspect]
     Active Substance: PEMETREXED DISODIUM
     Indication: LUNG ADENOCARCINOMA
     Route: 041
     Dates: start: 20130207, end: 20130207
  37. TRAMCET [Concomitant]
     Active Substance: ACETAMINOPHEN\TRAMADOL
     Route: 048
     Dates: start: 20121101, end: 20130217

REACTIONS (3)
  - Sepsis [Recovered/Resolved]
  - Pneumatosis intestinalis [Recovered/Resolved]
  - Liver disorder [Recovered/Resolved]

NARRATIVE: CASE EVENT DATE: 20130217
